FAERS Safety Report 5778558-X (Version None)
Quarter: 2008Q2

REPORT INFORMATION
  Report Type: 
  Country: None (occurrence: None)
  Receive Date: 20080619
  Receipt Date: 20080609
  Transmission Date: 20081010
  Serious: Yes (Other)
  Sender: FDA-Public Use
  Company Number: GB-ABBOTT-08P-167-0457419-00

PATIENT
  Sex: Female

DRUGS (2)
  1. HUMIRA [Suspect]
     Indication: CROHN'S DISEASE
     Dates: start: 20070813, end: 20071119
  2. HUMIRA [Suspect]
     Dates: start: 20080116

REACTIONS (17)
  - ALOPECIA [None]
  - ANGER [None]
  - ANXIETY [None]
  - ARTHRALGIA [None]
  - BREAST SWELLING [None]
  - COUGH [None]
  - GINGIVAL PAIN [None]
  - HORMONE LEVEL ABNORMAL [None]
  - INFLUENZA [None]
  - MENORRHAGIA [None]
  - MOUTH ULCERATION [None]
  - MUSCULAR WEAKNESS [None]
  - ORAL HERPES [None]
  - PHARYNGOLARYNGEAL PAIN [None]
  - PRURITUS [None]
  - RASH [None]
  - TOOTHACHE [None]
